FAERS Safety Report 12713439 (Version 2)
Quarter: 2016Q4

REPORT INFORMATION
  Report Type: Spontaneous
  Country: US (occurrence: US)
  Receive Date: 20160903
  Receipt Date: 20161007
  Transmission Date: 20170207
  Serious: Yes (Hospitalization)
  Sender: FDA-Public Use
  Company Number: US-ASTRAZENECA-2016SE92654

PATIENT
  Sex: Female
  Weight: 89.8 kg

DRUGS (15)
  1. SYMBICORT [Suspect]
     Active Substance: BUDESONIDE\FORMOTEROL FUMARATE DIHYDRATE
     Indication: ASTHMA
     Dosage: 160/4.5 MCG THREE TIMES A DAY
     Route: 055
  2. SYMBICORT [Suspect]
     Active Substance: BUDESONIDE\FORMOTEROL FUMARATE DIHYDRATE
     Indication: ASTHMA
     Dosage: 160/4.5 MCG TWO PUFFS, TWICE A DAY
     Route: 055
     Dates: start: 201608
  3. SYMBICORT [Suspect]
     Active Substance: BUDESONIDE\FORMOTEROL FUMARATE DIHYDRATE
     Indication: ASTHMA
     Dosage: 160/4.5 MCG TWO PUFFS, TWICE A DAY
     Route: 055
  4. NEXIUM [Suspect]
     Active Substance: ESOMEPRAZOLE MAGNESIUM
     Dosage: DAILY, EVERY MORNING
     Route: 048
  5. ASPIRIN. [Concomitant]
     Active Substance: ASPIRIN
  6. POTASSIUM [Concomitant]
     Active Substance: POTASSIUM
  7. XOPENEX [Concomitant]
     Active Substance: LEVALBUTEROL HYDROCHLORIDE
  8. DIGOXIN. [Concomitant]
     Active Substance: DIGOXIN
     Dosage: 0.25
  9. MONTELUKAST [Concomitant]
     Active Substance: MONTELUKAST SODIUM
     Dosage: ONE AT NIGHT
  10. ATROVENT [Concomitant]
     Active Substance: IPRATROPIUM BROMIDE
  11. LASIX [Concomitant]
     Active Substance: FUROSEMIDE
     Dosage: 40 MG IN MORNING AND THE EVENING
  12. METOPROLAL TARTRATE [Suspect]
     Active Substance: METOPROLOL TARTRATE
     Indication: CARDIAC DISORDER
     Route: 048
  13. CLOPIDOGREL [Concomitant]
     Active Substance: CLOPIDOGREL BISULFATE
     Route: 048
  14. TRAZODONE [Concomitant]
     Active Substance: TRAZODONE HYDROCHLORIDE
     Indication: SLEEP DISORDER
     Dosage: 50.0MG UNKNOWN
     Dates: start: 2008
  15. DONATAL [Concomitant]

REACTIONS (8)
  - Intracranial aneurysm [Unknown]
  - Weight decreased [Unknown]
  - Intentional product misuse [Unknown]
  - Off label use [Unknown]
  - Peripheral swelling [Unknown]
  - Dyspnoea [Unknown]
  - Product quality issue [Unknown]
  - Drug ineffective [Unknown]
